FAERS Safety Report 11865165 (Version 1)
Quarter: 2015Q4

REPORT INFORMATION
  Report Type: Report from Study
  Country: US (occurrence: US)
  Receive Date: 20151223
  Receipt Date: 20151223
  Transmission Date: 20160305
  Serious: Yes (Other)
  Sender: FDA-Public Use
  Company Number: US-BIOMARINAP-US-2015-108459

PATIENT

DRUGS (1)
  1. ALDURAZYME [Suspect]
     Active Substance: LARONIDASE
     Indication: MUCOPOLYSACCHARIDOSIS I
     Dosage: 66.7 MG, QOW
     Route: 042
     Dates: start: 20050217

REACTIONS (4)
  - Depression [Unknown]
  - Anxiety [Unknown]
  - Bipolar disorder [Unknown]
  - Paranoia [Unknown]
